FAERS Safety Report 16679593 (Version 1)
Quarter: 2019Q3

REPORT INFORMATION
  Report Type: Spontaneous
  Country: FR (occurrence: FR)
  Receive Date: 20190807
  Receipt Date: 20190807
  Transmission Date: 20191004
  Serious: Yes (Hospitalization)
  Sender: FDA-Public Use
  Company Number: FR-TEVA-2019-FR-1089214

PATIENT
  Age: 17 Year
  Sex: Male
  Weight: 60 kg

DRUGS (3)
  1. SERESTA [Suspect]
     Active Substance: OXAZEPAM
     Indication: AGITATION
     Dosage: 1 DOSAGE FORMS
     Route: 048
     Dates: start: 20190711, end: 20190711
  2. DAFALGAN [Suspect]
     Active Substance: ACETAMINOPHEN
     Indication: POISONING DELIBERATE
     Dosage: 20 DOSAGE FORMS PER TOTAL
     Route: 048
     Dates: start: 20190711, end: 20190711
  3. IBUPROFENE [Suspect]
     Active Substance: IBUPROFEN
     Indication: POISONING DELIBERATE
     Dosage: 2400MG PER TOTAL
     Route: 048
     Dates: start: 20190711, end: 20190711

REACTIONS (3)
  - Vomiting [Recovered/Resolved]
  - Somnolence [Recovered/Resolved]
  - Analgesic drug level increased [Recovered/Resolved]

NARRATIVE: CASE EVENT DATE: 20190711
